FAERS Safety Report 6013697-X (Version None)
Quarter: 2008Q4

REPORT INFORMATION
  Report Type: 
  Country: None (occurrence: None)
  Receive Date: 20081219
  Receipt Date: 20081218
  Transmission Date: 20090506
  Serious: Yes (Other)
  Sender: FDA-Public Use
  Company Number: A0752401A

PATIENT
  Sex: Female

DRUGS (2)
  1. VALTREX [Suspect]
     Dosage: 1G THREE TIMES PER DAY
     Route: 048
     Dates: start: 20081013, end: 20081015
  2. NO CONCURRENT MEDICATION [Concomitant]

REACTIONS (24)
  - ABASIA [None]
  - ABDOMINAL PAIN UPPER [None]
  - AGITATION [None]
  - ANOREXIA [None]
  - BALANCE DISORDER [None]
  - COUGH [None]
  - DELIRIUM [None]
  - DIZZINESS [None]
  - ERUCTATION [None]
  - EYE IRRITATION [None]
  - EYE PAIN [None]
  - FEELING ABNORMAL [None]
  - HALLUCINATION [None]
  - HEADACHE [None]
  - INSOMNIA [None]
  - MALAISE [None]
  - MUSCULAR WEAKNESS [None]
  - MYALGIA [None]
  - NAUSEA [None]
  - NECK PAIN [None]
  - PAIN IN EXTREMITY [None]
  - PALLOR [None]
  - RETCHING [None]
  - VOMITING [None]
